FAERS Safety Report 15234928 (Version 1)
Quarter: 2018Q3

REPORT INFORMATION
  Report Type: Spontaneous
  Country: US (occurrence: US)
  Receive Date: 20180803
  Receipt Date: 20180803
  Transmission Date: 20181010
  Serious: Yes (Other)
  Sender: FDA-Public Use
  Company Number: US-ACCORD-065018

PATIENT
  Age: 52 Year
  Sex: Female
  Weight: 90.72 kg

DRUGS (9)
  1. DOCETAXEL ACCORD [Suspect]
     Active Substance: DOCETAXEL
     Indication: INVASIVE DUCTAL BREAST CARCINOMA
     Dosage: NUMBER OF CYCLES:  04
     Dates: start: 20140203, end: 20140411
  2. DECADRON [Concomitant]
     Active Substance: DEXAMETHASONE
  3. EMEND [Concomitant]
     Active Substance: APREPITANT
  4. SYNTHROID [Concomitant]
     Active Substance: LEVOTHYROXINE SODIUM
  5. CYCLOPHOSPHAMIDE. [Suspect]
     Active Substance: CYCLOPHOSPHAMIDE
     Indication: INVASIVE DUCTAL BREAST CARCINOMA
     Dosage: NUMBER OF CYCLES:  04
     Dates: start: 20140203, end: 20140411
  6. PALONOSETRON. [Concomitant]
     Active Substance: PALONOSETRON HYDROCHLORIDE
  7. RESTORIL [Concomitant]
     Active Substance: TEMAZEPAM
  8. NEULASTA [Concomitant]
     Active Substance: PEGFILGRASTIM
  9. CLARITIN [Concomitant]
     Active Substance: LORATADINE

REACTIONS (1)
  - Alopecia [Unknown]
